FAERS Safety Report 6291216-0 (Version None)
Quarter: 2009Q3

REPORT INFORMATION
  Report Type: 
  Country: None (occurrence: None)
  Receive Date: 20090730
  Receipt Date: 20090722
  Transmission Date: 20100115
  Serious: Yes (Hospitalization)
  Sender: FDA-Public Use
  Company Number: JP-B.I. PHARMACEUTICALS,INC./RIDGEFIELD-2009-BP-08164NB

PATIENT
  Sex: Male

DRUGS (3)
  1. SPIRIVA [Suspect]
     Indication: CHRONIC OBSTRUCTIVE PULMONARY DISEASE
     Dosage: 18UG
     Route: 055
     Dates: start: 20090621, end: 20090627
  2. GASMOTIN [Concomitant]
     Indication: ILEUS
     Dosage: 15 MG
     Route: 048
  3. MAGNESIUM OXIDE [Concomitant]
     Indication: ILEUS
     Dosage: 1 G
     Route: 048

REACTIONS (2)
  - PNEUMONIA [None]
  - RASH [None]
